FAERS Safety Report 13527027 (Version 1)
Quarter: 2017Q2

REPORT INFORMATION
  Report Type: Spontaneous
  Country: US (occurrence: US)
  Receive Date: 20170509
  Receipt Date: 20170509
  Transmission Date: 20170830
  Serious: Yes (Hospitalization)
  Sender: FDA-Public Use
  Company Number: None

PATIENT
  Age: 72 Year
  Sex: Female
  Weight: 72.19 kg

DRUGS (1)
  1. RECLAST [Suspect]
     Active Substance: ZOLEDRONIC ACID
     Indication: OSTEOPENIA

REACTIONS (10)
  - Pain in extremity [None]
  - Body temperature increased [None]
  - Head injury [None]
  - Syncope [None]
  - Mobility decreased [None]
  - Neck pain [None]
  - Dehydration [None]
  - Back pain [None]
  - Sleep disorder due to general medical condition, insomnia type [None]
  - Urinary tract infection [None]

NARRATIVE: CASE EVENT DATE: 20170428
